FAERS Safety Report 5849030-3 (Version None)
Quarter: 2008Q3

REPORT INFORMATION
  Report Type: 
  Country: None (occurrence: None)
  Receive Date: 20080815
  Receipt Date: 20080730
  Transmission Date: 20090109
  Serious: Yes (Other)
  Sender: FDA-Public Use
  Company Number: WAES 0803USA02043

PATIENT
  Age: 37 Year
  Sex: Female

DRUGS (1)
  1. ALDOMET [Suspect]
     Dosage: PO
     Route: 048

REACTIONS (9)
  - BLOOD PRESSURE INCREASED [None]
  - CAESAREAN SECTION [None]
  - CARDIAC FAILURE [None]
  - CARDIOMYOPATHY [None]
  - DRUG EXPOSURE DURING PREGNANCY [None]
  - DYSPNOEA [None]
  - NO THERAPEUTIC RESPONSE [None]
  - PLEURAL EFFUSION [None]
  - PROTEIN URINE PRESENT [None]
